FAERS Safety Report 7590611-7 (Version None)
Quarter: 2011Q3

REPORT INFORMATION
  Report Type: 
  Country: None (occurrence: None)
  Receive Date: 20110705
  Receipt Date: 20110629
  Transmission Date: 20111222
  Serious: Yes (Death, Other)
  Sender: FDA-Public Use
  Company Number: VE-PFIZER INC-2011138632

PATIENT
  Age: 58 Year
  Sex: Male

DRUGS (1)
  1. LIPITOR [Suspect]
     Indication: INFARCTION
     Dosage: DAILY
     Route: 048
     Dates: start: 20030101

REACTIONS (2)
  - INFARCTION [None]
  - INTESTINAL OBSTRUCTION [None]
